FAERS Safety Report 21744186 (Version 1)
Quarter: 2022Q4

REPORT INFORMATION
  Report Type: Spontaneous
  Country: US (occurrence: US)
  Receive Date: 20221218
  Receipt Date: 20221218
  Transmission Date: 20230113
  Serious: No
  Sender: FDA-Public Use
  Company Number: US-ORGANON-O2212USA000290

PATIENT
  Age: 16 Year
  Sex: Male

DRUGS (4)
  1. REMERON [Suspect]
     Active Substance: MIRTAZAPINE
     Indication: Generalised anxiety disorder
     Dosage: 7.5 MILLIGRAM
  2. SERTRALINE [Concomitant]
     Active Substance: SERTRALINE HYDROCHLORIDE
     Indication: Generalised anxiety disorder
     Dosage: 25 MILLIGRAM, EVERY MORNING
  3. SERTRALINE [Concomitant]
     Active Substance: SERTRALINE HYDROCHLORIDE
     Dosage: 50 MILLIGRAM, EVERY MORNING
  4. SERTRALINE [Concomitant]
     Active Substance: SERTRALINE HYDROCHLORIDE
     Dosage: 25 MILLIGRAM, EVERY MORNING

REACTIONS (5)
  - Therapeutic response unexpected [Unknown]
  - Product use in unapproved indication [Unknown]
  - Product use issue [Unknown]
  - Incorrect dose administered [Unknown]
  - Product prescribing issue [Unknown]
